FAERS Safety Report 9583528 (Version 2)
Quarter: 2014Q1

REPORT INFORMATION
  Report Type: Spontaneous
  Country: US (occurrence: US)
  Receive Date: 20131002
  Receipt Date: 20140304
  Transmission Date: 20141002
  Serious: No
  Sender: FDA-Public Use
  Company Number: US-AMGEN-USASP2013047642

PATIENT
  Age: 51 Year
  Sex: Female

DRUGS (4)
  1. ENBREL [Suspect]
     Indication: RHEUMATOID ARTHRITIS
     Dosage: 50 MG, QWK
     Route: 065
     Dates: start: 20130416
  2. ENBREL [Suspect]
     Dosage: UNK
     Route: 065
  3. METHOTREXATE [Suspect]
     Indication: PRODUCT USED FOR UNKNOWN INDICATION
     Dosage: 8 PILLS A WEEK
     Route: 065
     Dates: end: 201311
  4. LEFLUNOMIDE [Suspect]
     Indication: PRODUCT USED FOR UNKNOWN INDICATION
     Dosage: UNK
     Route: 065
     Dates: end: 20131113

REACTIONS (15)
  - Pain in extremity [Not Recovered/Not Resolved]
  - Onychalgia [Not Recovered/Not Resolved]
  - Oedema peripheral [Not Recovered/Not Resolved]
  - Alopecia [Not Recovered/Not Resolved]
  - Vomiting [Recovered/Resolved]
  - Fatigue [Not Recovered/Not Resolved]
  - Contusion [Not Recovered/Not Resolved]
  - Blood urine present [Recovered/Resolved]
  - Dysuria [Recovered/Resolved]
  - Dizziness [Recovered/Resolved]
  - Pallor [Recovered/Resolved]
  - Blood count abnormal [Unknown]
  - Finger deformity [Not Recovered/Not Resolved]
  - Local swelling [Not Recovered/Not Resolved]
  - Injection site pain [Unknown]
